FAERS Safety Report 4458273-5 (Version None)
Quarter: 2004Q3

REPORT INFORMATION
  Report Type: 
  Country: None (occurrence: None)
  Receive Date: 20040917
  Receipt Date: 20031231
  Transmission Date: 20050211
  Serious: Yes (Other)
  Sender: FDA-Public Use
  Company Number: US-JNJFOC-20040100301

PATIENT
  Age: 27 Year
  Sex: Female
  Weight: 95.3 kg

DRUGS (9)
  1. TOPAMAX [Suspect]
     Indication: MIGRAINE
     Dosage: 75 MG, 2 IN 1 DAY, ORAL
     Route: 048
  2. CELEBREX [Concomitant]
  3. METHOTREXATE [Concomitant]
  4. PRILOSEC [Concomitant]
  5. PREDNISONE [Concomitant]
  6. ZOVIA (OVULEN 50) [Concomitant]
  7. FOLIC ACID [Concomitant]
  8. PERCOCET [Concomitant]
  9. ZANTAC [Concomitant]

REACTIONS (1)
  - CONVULSION [None]
